FAERS Safety Report 10858939 (Version 1)
Quarter: 2015Q1

REPORT INFORMATION
  Report Type: Spontaneous
  Country: US (occurrence: US)
  Receive Date: 20150223
  Receipt Date: 20150223
  Transmission Date: 20150721
  Serious: Yes (Other)
  Sender: FDA-Public Use
  Company Number: US-CELGENEUS-163-21880-14074263

PATIENT
  Sex: Female

DRUGS (2)
  1. CLARITIN [Suspect]
     Active Substance: LORATADINE
     Indication: PRODUCT USED FOR UNKNOWN INDICATION
     Route: 065
  2. REVLIMID [Suspect]
     Active Substance: LENALIDOMIDE
     Indication: LEUKAEMIA
     Dosage: 10 MILLIGRAM
     Route: 048
     Dates: start: 201403

REACTIONS (2)
  - Pruritus generalised [Unknown]
  - Osteomyelitis [Unknown]

NARRATIVE: CASE EVENT DATE: 2014
